FAERS Safety Report 10467018 (Version 1)
Quarter: 2014Q3

REPORT INFORMATION
  Report Type: Report from Study
  Country: US (occurrence: US)
  Receive Date: 20140922
  Receipt Date: 20140922
  Transmission Date: 20150326
  Serious: Yes (Hospitalization)
  Sender: FDA-Public Use
  Company Number: US-SA-2014SA129141

PATIENT
  Age: 74 Year
  Sex: Male

DRUGS (2)
  1. LANTUS [Suspect]
     Active Substance: INSULIN GLARGINE
     Indication: TYPE 2 DIABETES MELLITUS
     Dosage: DOSE:54 UNIT(S)
     Route: 065
     Dates: start: 2013
  2. HUMALOG [Concomitant]
     Active Substance: INSULIN LISPRO
     Dosage: BEFORE EACH MEAL DOSE:10 UNIT(S)
     Route: 058

REACTIONS (2)
  - Drug dose omission [Unknown]
  - Stent placement [Unknown]

NARRATIVE: CASE EVENT DATE: 201312
